FAERS Safety Report 4804374-9 (Version None)
Quarter: 2005Q4

REPORT INFORMATION
  Report Type: 
  Country: None (occurrence: None)
  Receive Date: 20051017
  Receipt Date: 20051005
  Transmission Date: 20060501
  Serious: Yes (Disabling)
  Sender: FDA-Public Use
  Company Number: 2005138948

PATIENT
  Age: 61 Year
  Sex: Female

DRUGS (5)
  1. DOXAZOSIN (DOXAZOSIN) [Suspect]
     Indication: BLOOD PRESSURE INCREASED
     Dosage: ORAL
     Route: 048
     Dates: start: 20050822, end: 20050914
  2. ORLISTAT [Concomitant]
  3. AMITRIPTYLINE HCL [Concomitant]
  4. ATENOLOL [Concomitant]
  5. IBUPROFEN [Concomitant]

REACTIONS (1)
  - JAUNDICE [None]
